FAERS Safety Report 13526329 (Version 1)
Quarter: 2017Q2

REPORT INFORMATION
  Report Type: Spontaneous
  Country: US (occurrence: US)
  Receive Date: 20170508
  Receipt Date: 20170508
  Transmission Date: 20170830
  Serious: Yes (Other)
  Sender: FDA-Public Use
  Company Number: None

PATIENT
  Age: 34 Year
  Sex: Male
  Weight: 75.15 kg

DRUGS (2)
  1. OMEPRAZOLE. [Suspect]
     Active Substance: OMEPRAZOLE
  2. MELATONIN [Concomitant]
     Active Substance: MELATONIN

REACTIONS (5)
  - Impaired work ability [None]
  - Malaise [None]
  - Nausea [None]
  - Abdominal pain upper [None]
  - Retching [None]

NARRATIVE: CASE EVENT DATE: 20170504
